FAERS Safety Report 7045107-8 (Version None)
Quarter: 2010Q4

REPORT INFORMATION
  Report Type: 
  Country: None (occurrence: None)
  Receive Date: 20101014
  Receipt Date: 20100427
  Transmission Date: 20110411
  Serious: No
  Sender: FDA-Public Use
  Company Number: US-BRISTOL-MYERS SQUIBB COMPANY-15073992

PATIENT
  Age: 31 Year
  Sex: Female

DRUGS (1)
  1. GLUCOPHAGE XR [Suspect]
     Route: 048
     Dates: start: 20100324

REACTIONS (2)
  - DIARRHOEA [None]
  - MUSCLE TWITCHING [None]
